FAERS Safety Report 6394140-8 (Version None)
Quarter: 2009Q4

REPORT INFORMATION
  Report Type: 
  Country: None (occurrence: None)
  Receive Date: 20091008
  Receipt Date: 20090928
  Transmission Date: 20100525
  Serious: Yes (Hospitalization)
  Sender: FDA-Public Use
  Company Number: FR-PFIZER INC-2009274634

PATIENT
  Age: 74 Year

DRUGS (13)
  1. LONOTEN [Suspect]
     Indication: HYPERTENSION
     Dosage: 0.5 DF, 1X/DAY
     Route: 048
     Dates: start: 20050501, end: 20090501
  2. LASILIX [Concomitant]
  3. KAYEXALATE [Concomitant]
  4. RENAGEL [Concomitant]
  5. CRESTOR [Concomitant]
  6. COVERSYL [Concomitant]
  7. ALLOPURINOL [Concomitant]
  8. CARDENSIEL [Concomitant]
  9. CACIT [Concomitant]
  10. SPECIAFOLDINE [Concomitant]
  11. KARDEGIC [Concomitant]
  12. TARDYFERON [Concomitant]
  13. MOPRAL [Concomitant]

REACTIONS (1)
  - PLEURAL EFFUSION [None]
